FAERS Safety Report 8555586-2 (Version None)
Quarter: 2012Q3

REPORT INFORMATION
  Report Type: 
  Country: None (occurrence: None)
  Receive Date: 20120731
  Receipt Date: 20111028
  Transmission Date: 20120928
  Serious: No
  Sender: FDA-Public Use
  Company Number: US-ASTRAZENECA-2009UW17109

PATIENT
  Age: 43 Year
  Sex: Female
  Weight: 31.8 kg

DRUGS (12)
  1. SEROQUEL [Suspect]
     Route: 048
     Dates: start: 20030123, end: 20080521
  2. SEROQUEL [Suspect]
     Route: 048
     Dates: start: 20030123, end: 20080521
  3. CARBIDOPA/LEVO [Concomitant]
     Dosage: 25/100 MG
     Dates: start: 20031015
  4. ABILIFY [Concomitant]
     Dates: start: 20080521
  5. ATENOLOL [Concomitant]
     Dates: start: 20040303
  6. SEROQUEL [Suspect]
     Indication: DEPRESSION
     Route: 048
     Dates: start: 19990101
  7. METHOCARBAMOL [Concomitant]
     Dates: start: 20031112
  8. SEROQUEL [Suspect]
     Indication: MOOD SWINGS
     Route: 048
     Dates: start: 19990101
  9. CLONAZEPAM [Concomitant]
     Dates: start: 20031116
  10. MEDROXYPROGESTERONE [Concomitant]
     Dates: start: 20031118
  11. LEXAPRO [Concomitant]
     Dates: start: 20040101
  12. TRAZODONE HYDROCHLORIDE [Concomitant]
     Dates: start: 20031015

REACTIONS (2)
  - INSULIN RESISTANCE [None]
  - DIABETES MELLITUS [None]
